FAERS Safety Report 12650728 (Version 1)
Quarter: 2016Q3

REPORT INFORMATION
  Report Type: Spontaneous
  Country: None (occurrence: None)
  Receive Date: 20160812
  Receipt Date: 20160812
  Transmission Date: 20161109
  Serious: Yes (Death)
  Sender: FDA-Public Use
  Company Number: None

PATIENT
  Age: 86 Year
  Sex: Male

DRUGS (1)
  1. PRADAXA [Suspect]
     Active Substance: DABIGATRAN ETEXILATE MESYLATE
     Indication: CEREBROVASCULAR ACCIDENT PROPHYLAXIS
     Dosage: IN THE MORNING TAKEN BY MOUTH
     Route: 048

REACTIONS (3)
  - Abdominal pain upper [None]
  - Vital functions abnormal [None]
  - Haemorrhage [None]

NARRATIVE: CASE EVENT DATE: 20160304
